FAERS Safety Report 9680000 (Version 1)
Quarter: 2013Q4

REPORT INFORMATION
  Report Type: Report from Study
  Country: AR (occurrence: AR)
  Receive Date: 20131110
  Receipt Date: 20131110
  Transmission Date: 20140711
  Serious: Yes (Other)
  Sender: FDA-Public Use
  Company Number: PHHY2013AR126843

PATIENT
  Sex: Male

DRUGS (2)
  1. ONBREZ [Suspect]
     Indication: DIZZINESS
     Dosage: 150 UG, QD
  2. ONBREZ [Suspect]
     Indication: OFF LABEL USE

REACTIONS (3)
  - Memory impairment [Unknown]
  - Head injury [Unknown]
  - Headache [Unknown]
